FAERS Safety Report 16318336 (Version 1)
Quarter: 2019Q2

REPORT INFORMATION
  Report Type: Spontaneous
  Country: ES (occurrence: ES)
  Receive Date: 20190516
  Receipt Date: 20190516
  Transmission Date: 20190711
  Serious: Yes (Life-Threatening, Hospitalization)
  Sender: FDA-Public Use
  Company Number: ES-AUROBINDO-AUR-APL-2019-025743

PATIENT

DRUGS (6)
  1. AMLODIPINE [Suspect]
     Active Substance: AMLODIPINE BESYLATE
     Indication: PRODUCT USED FOR UNKNOWN INDICATION
     Dosage: DOSAGE UNIT FREQUENCY:5 MG-MILLIGRAMS DOSE PER DOSE: 5 MG-MILLIGRAMS
     Route: 048
     Dates: start: 201008, end: 20161208
  2. REPAGLINIDA [Concomitant]
     Active Substance: REPAGLINIDE
     Indication: TYPE 2 DIABETES MELLITUS
     Dosage: DOSAGE UNIT FREQUENCY:0.5 MG-MILLIGRAMS DOSE PER DOSE: 0.5 MG-MILLIGRAMS
     Route: 048
     Dates: start: 20140310, end: 20161208
  3. AZARGA [Concomitant]
     Active Substance: BRINZOLAMIDE\TIMOLOL MALEATE
     Indication: GLAUCOMA
     Dosage: UNK
     Route: 047
     Dates: start: 20160509, end: 20161208
  4. FUROSEMIDA [Concomitant]
     Active Substance: FUROSEMIDE
     Indication: PRODUCT USED FOR UNKNOWN INDICATION
     Dosage: DOSAGE UNIT FREQUENCY:40 MG-MILLIGRAMS DOSE PER DOSE: 40 MG-MILLIGRAMS
     Route: 048
     Dates: start: 201207, end: 20161208
  5. CARVEDILOL. [Interacting]
     Active Substance: CARVEDILOL
     Indication: PRODUCT USED FOR UNKNOWN INDICATION
     Dosage: DOSAGE UNIT FREQUENCY:6.25 MG-MILLIGRAMS DOSE PER DOSE: 6.25 MG-MILLIGRAMS
     Route: 048
     Dates: start: 201609, end: 20161208
  6. PAROXETINE. [Concomitant]
     Active Substance: PAROXETINE
     Indication: PRODUCT USED FOR UNKNOWN INDICATION
     Dosage: DOSAGE UNIT FREQUENCY:20 MG-MILLIGRAMS DOSAGE PER DOSE: 20 MG-MILLIGRAMS
     Route: 048
     Dates: start: 201008, end: 20161208

REACTIONS (1)
  - Atrioventricular block [Recovered/Resolved with Sequelae]

NARRATIVE: CASE EVENT DATE: 20161208
